FAERS Safety Report 4914176-0 (Version None)
Quarter: 2006Q1

REPORT INFORMATION
  Report Type: 
  Country: None (occurrence: None)
  Receive Date: 20060213
  Receipt Date: 20060131
  Transmission Date: 20060701
  Serious: Yes (Death)
  Sender: FDA-Public Use
  Company Number: 2006JP000047

PATIENT
  Age: 71 Year
  Sex: Male

DRUGS (10)
  1. PROGRAF [Suspect]
     Indication: RHEUMATOID ARTHRITIS
     Dosage: 2 MG, UID/QD, ORAL
     Route: 048
     Dates: end: 20060130
  2. ISOSORBIDE MONONITRATE [Concomitant]
  3. TICPILONE (TICLOPIDINE HYDROCHLORIDE) [Concomitant]
  4. FRENADOL S (DEXTROMETHORPHAN HYDROBROMIDE, CHLORPHENAMINE MALEATE) [Concomitant]
  5. PREDOHAN         (PREDNISOLONE) [Concomitant]
  6. HERBESSOR R      (DILTIAZEM HYDROCHLORIDE) [Concomitant]
  7. ZANTAC [Concomitant]
  8. LUPRAC  (TORASEMIDE) [Concomitant]
  9. TANATRIL ^ALGOL^                 (IMIDAPRIL HYDROCHLORIDE) [Concomitant]
  10. SALOBEL [Concomitant]

REACTIONS (11)
  - ACUTE RESPIRATORY FAILURE [None]
  - ATRIOVENTRICULAR BLOCK COMPLETE [None]
  - CARDIAC ARREST [None]
  - CARDIAC FAILURE [None]
  - CHOKING SENSATION [None]
  - CONDITION AGGRAVATED [None]
  - DIFFUSE ALVEOLAR DAMAGE [None]
  - HYPOXIA [None]
  - INTERSTITIAL LUNG DISEASE [None]
  - PALPITATIONS [None]
  - TACHYCARDIA [None]
